FAERS Safety Report 6912699-6 (Version None)
Quarter: 2010Q3

REPORT INFORMATION
  Report Type: 
  Country: None (occurrence: None)
  Receive Date: 20100806
  Receipt Date: 20080923
  Transmission Date: 20110219
  Serious: No
  Sender: FDA-Public Use
  Company Number: US-PFIZER INC-2008080543

PATIENT
  Age: 27 Year
  Sex: Male
  Weight: 107 kg

DRUGS (10)
  1. VFEND [Suspect]
     Indication: ASPERGILLOSIS
     Route: 048
     Dates: start: 20080909
  2. ACETAMINOPHEN [Concomitant]
  3. ACYCLOVIR [Concomitant]
  4. AMIKACIN [Concomitant]
  5. DAPSONE [Concomitant]
  6. COLACE [Concomitant]
  7. ATIVAN [Concomitant]
  8. MORPHINE [Concomitant]
     Route: 042
  9. PROTONIX [Concomitant]
     Route: 042
  10. ZOSYN [Concomitant]

REACTIONS (1)
  - DRUG LEVEL DECREASED [None]
